FAERS Safety Report 18729609 (Version 2)
Quarter: 2021Q2

REPORT INFORMATION
  Report Type: Spontaneous
  Country: DE (occurrence: DE)
  Receive Date: 20210112
  Receipt Date: 20210507
  Transmission Date: 20210717
  Serious: Yes (Other)
  Sender: FDA-Public Use
  Company Number: DE-VERTEX PHARMACEUTICALS-2020-023197

PATIENT
  Age: 26 Year
  Sex: Female

DRUGS (16)
  1. KALYDECO [Suspect]
     Active Substance: IVACAFTOR
     Indication: CYSTIC FIBROSIS
     Dosage: 1 TAB IN THE EVENING
     Route: 048
     Dates: start: 20200901, end: 2020
  2. KALYDECO [Suspect]
     Active Substance: IVACAFTOR
     Dosage: REDUCED
     Route: 048
     Dates: start: 20201109
  3. IPRATROPIUMBROMID [Concomitant]
     Active Substance: IPRATROPIUM BROMIDE
     Dosage: UNK, TID
  4. URSOFALK [Concomitant]
     Active Substance: URSODIOL
     Dosage: UNK, TID
  5. BECLOMETASONE;FORMOTEROL [Concomitant]
     Active Substance: BECLOMETHASONE\FORMOTEROL
     Dosage: UNK, BID
  6. AZITHROMYCIN ANHYDROUS. [Concomitant]
     Active Substance: AZITHROMYCIN ANHYDROUS
     Dosage: 3 TIMES PER WEEK
  7. KAFTRIO [Suspect]
     Active Substance: ELEXACAFTOR\IVACAFTOR\TEZACAFTOR
     Dosage: 2 TABS AM
     Route: 048
  8. MUCOCLEAR [SODIUM CHLORIDE] [Concomitant]
     Dosage: UNK, TID
  9. KAFTRIO [Suspect]
     Active Substance: ELEXACAFTOR\IVACAFTOR\TEZACAFTOR
     Indication: CYSTIC FIBROSIS
     Dosage: 2 TABS IN THE MORNING
     Route: 048
     Dates: start: 20200901, end: 2020
  10. SALBUTAMOL [Concomitant]
     Active Substance: ALBUTEROL
     Dosage: UNK, TID
  11. IRON [Concomitant]
     Active Substance: IRON
     Dosage: UNK, BID
  12. INSULIN ASPART [Concomitant]
     Active Substance: INSULIN ASPART
  13. KAFTRIO [Suspect]
     Active Substance: ELEXACAFTOR\IVACAFTOR\TEZACAFTOR
     Dosage: 1 TAB IN MORNING
     Route: 048
     Dates: start: 20201109
  14. KAFTRIO [Suspect]
     Active Substance: ELEXACAFTOR\IVACAFTOR\TEZACAFTOR
     Dosage: 2 TABLETS AM 1 TAB AM, ALTERNATING DAILY
     Route: 048
  15. KALYDECO [Suspect]
     Active Substance: IVACAFTOR
     Dosage: 1 TAB PM
     Route: 048
  16. CREON [Concomitant]
     Active Substance: PANCRELIPASE AMYLASE\PANCRELIPASE LIPASE\PANCRELIPASE PROTEASE
     Dosage: 20000, 12?14 PER DAY

REACTIONS (2)
  - Abortion spontaneous [Unknown]
  - Exposure during pregnancy [Unknown]

NARRATIVE: CASE EVENT DATE: 2020
